FAERS Safety Report 4327663-3 (Version None)
Quarter: 2004Q1

REPORT INFORMATION
  Report Type: 
  Country: None (occurrence: None)
  Receive Date: 20040325
  Receipt Date: 20040316
  Transmission Date: 20041129
  Serious: Yes (Hospitalization)
  Sender: FDA-Public Use
  Company Number: 2004-03-0959

PATIENT
  Age: 69 Year
  Sex: Female

DRUGS (6)
  1. CELESTONE [Suspect]
     Dosage: ORAL
     Route: 048
     Dates: start: 20040101, end: 20040106
  2. AUGMENTIN            ORAL [Suspect]
     Dosage: ORAL
     Route: 048
     Dates: start: 20040101, end: 20040106
  3. LORAZEPAM [Concomitant]
  4. ISOPTIN TAB [Concomitant]
  5. FENOTEROL HYDROBROMIDE [Concomitant]
  6. FLIXOTIDE [Concomitant]

REACTIONS (1)
  - MENINGITIS ASEPTIC [None]
